FAERS Safety Report 9171807 (Version 1)
Quarter: 2013Q1

REPORT INFORMATION
  Report Type: Spontaneous
  Country: IT (occurrence: IT)
  Receive Date: 20130319
  Receipt Date: 20130319
  Transmission Date: 20140127
  Serious: Yes (Hospitalization)
  Sender: FDA-Public Use
  Company Number: IT-BRISTOL-MYERS SQUIBB COMPANY-17466665

PATIENT
  Age: 80 Year
  Sex: Female

DRUGS (4)
  1. COUMADIN TABS 5 MG [Suspect]
     Indication: ATRIAL FIBRILLATION
     Dosage: 1DF=1 UNIT
     Route: 048
     Dates: start: 20120101
  2. LANOXIN [Concomitant]
     Dosage: TAB
     Route: 048
  3. PRISMA [Concomitant]
  4. AMARYL [Concomitant]
     Route: 048

REACTIONS (3)
  - Abdominal pain upper [Unknown]
  - Haematemesis [Unknown]
  - Syncope [Unknown]
